FAERS Safety Report 22656683 (Version 1)
Quarter: 2023Q2

REPORT INFORMATION
  Report Type: Report from Study
  Country: US (occurrence: US)
  Receive Date: 20230630
  Receipt Date: 20230630
  Transmission Date: 20230722
  Serious: No
  Sender: FDA-Public Use
  Company Number: US-ACADIA PHARMACEUTICALS INC.-ACA-2023-PIM-002260

PATIENT
  Sex: Female

DRUGS (12)
  1. NUPLAZID [Suspect]
     Active Substance: PIMAVANSERIN TARTRATE
     Indication: Parkinson^s disease
     Dosage: 34 MILLIGRAM, QD
     Route: 048
     Dates: start: 20230605
  2. NUPLAZID [Suspect]
     Active Substance: PIMAVANSERIN TARTRATE
     Indication: Delusion
  3. NUPLAZID [Suspect]
     Active Substance: PIMAVANSERIN TARTRATE
     Indication: Hallucination
  4. CARBIDOPA\LEVODOPA [Concomitant]
     Active Substance: CARBIDOPA\LEVODOPA
     Dosage: 50-200MG
  5. ESOMEPRAZOLE [Concomitant]
     Active Substance: ESOMEPRAZOLE
     Dosage: 20 MILLIGRAM
  6. ONGENTYS [Concomitant]
     Active Substance: OPICAPONE
     Dosage: 25 MILLIGRAM
  7. TRAZODONE HYDROCHLORIDE [Concomitant]
     Active Substance: TRAZODONE HYDROCHLORIDE
     Dosage: 50 MILLIGRAM
  8. AMLODIPINE BESYLATE [Concomitant]
     Active Substance: AMLODIPINE BESYLATE
     Dosage: 10 MILLIGRAM
  9. ANASTROZOLE [Concomitant]
     Active Substance: ANASTROZOLE
     Dosage: 1 MILLIGRAM
  10. HYDROCODONE [Concomitant]
     Active Substance: HYDROCODONE
     Dosage: 10-325 MG
  11. PRAMIPEXOLE [Concomitant]
     Active Substance: PRAMIPEXOLE
     Dosage: 4.5 MG
  12. PROLIA [Concomitant]
     Active Substance: DENOSUMAB
     Dosage: SOS 60MG/ML

REACTIONS (8)
  - Back disorder [Not Recovered/Not Resolved]
  - Spinal stenosis [Not Recovered/Not Resolved]
  - Feeling abnormal [Not Recovered/Not Resolved]
  - Thinking abnormal [Not Recovered/Not Resolved]
  - Dysgraphia [Not Recovered/Not Resolved]
  - Hallucination [Unknown]
  - Hallucinations, mixed [Not Recovered/Not Resolved]
  - Gait disturbance [Not Recovered/Not Resolved]
